FAERS Safety Report 17963801 (Version 1)
Quarter: 2020Q2

REPORT INFORMATION
  Report Type: Spontaneous
  Country: US (occurrence: US)
  Receive Date: 20200630
  Receipt Date: 20200630
  Transmission Date: 20200714
  Serious: No
  Sender: FDA-Public Use
  Company Number: US-ELI_LILLY_AND_COMPANY-US202006003118

PATIENT
  Age: 61 Year
  Sex: Female

DRUGS (1)
  1. EMGALITY [Suspect]
     Active Substance: GALCANEZUMAB-GNLM
     Indication: PRODUCT USED FOR UNKNOWN INDICATION
     Dosage: 240 MG, STARTING DOSE
     Route: 065
     Dates: start: 20200604

REACTIONS (6)
  - Back pain [Unknown]
  - Pain in jaw [Recovered/Resolved]
  - Musculoskeletal pain [Unknown]
  - Pleuritic pain [Unknown]
  - Dyspnoea [Unknown]
  - Cough [Unknown]

NARRATIVE: CASE EVENT DATE: 20200604
